FAERS Safety Report 4884788-1 (Version None)
Quarter: 2005Q4

REPORT INFORMATION
  Report Type: 
  Country: None (occurrence: None)
  Receive Date: 20051201
  Receipt Date: 20050909
  Transmission Date: 20060501
  Serious: No
  Sender: FDA-Public Use
  Company Number: 2005PV001941

PATIENT
  Age: 54 Year
  Sex: Female
  Weight: 70.3075 kg

DRUGS (7)
  1. BYETTA [Suspect]
     Indication: DIABETES MELLITUS NON-INSULIN-DEPENDENT
     Dosage: 5 MCG; BID; SC
     Route: 058
     Dates: start: 20050906
  2. ACTOS [Concomitant]
  3. GLIPIZIDE [Concomitant]
  4. METFORMIN HCL [Concomitant]
  5. LIPITOR [Concomitant]
  6. PRILOSEC [Concomitant]
  7. EXCEDRIN (MIGRAINE) [Concomitant]

REACTIONS (3)
  - EYE HAEMORRHAGE [None]
  - HEADACHE [None]
  - LACRIMATION INCREASED [None]
